FAERS Safety Report 7208653-X (Version None)
Quarter: 2010Q4

REPORT INFORMATION
  Report Type: 
  Country: None (occurrence: None)
  Receive Date: 20101222
  Receipt Date: 20101207
  Transmission Date: 20110411
  Serious: Yes (Disabling, Other)
  Sender: FDA-Public Use
  Company Number: AUR-APL-2010-03117

PATIENT
  Sex: Female

DRUGS (15)
  1. MELOXICAM [Suspect]
     Dosage: 15MG
  2. SUMATRIPTAN [Suspect]
     Dosage: 100MG
  3. EFFEXOR XR [Suspect]
     Dosage: 150MG
  4. EFFEXOR [Suspect]
     Dosage: 75MG
  5. LYRICA [Suspect]
     Dosage: 100MG
  6. ALPRAZOLAM [Suspect]
     Dosage: 1MG
  7. NASONEX [Suspect]
     Dosage: 50UG
  8. VITAMIN D [Suspect]
  9. HYDROCODONE BITARTRATE + ACETAMINOPHEN [Suspect]
     Dosage: 10MG/500MG
  10. LEVOTHYROXINE [Suspect]
     Dosage: 75UG
  11. DIVALPROEX [Suspect]
     Dosage: 500MG
  12. SEROQUEL [Suspect]
     Dosage: 200MG
  13. OMEPRAZOLE [Suspect]
     Dosage: 20MG
  14. BENZACLIN TOPICAL GEL [Suspect]
  15. FUROSEMIDE [Suspect]
     Dosage: 200MG

REACTIONS (5)
  - ATAXIA [None]
  - FALL [None]
  - TREMOR [None]
  - WALKING AID USER [None]
  - WHEELCHAIR USER [None]
